FAERS Safety Report 9640187 (Version 2)
Quarter: 2013Q4

REPORT INFORMATION
  Report Type: Spontaneous
  Country: US (occurrence: US)
  Receive Date: 20131023
  Receipt Date: 20131029
  Transmission Date: 20140711
  Serious: No
  Sender: FDA-Public Use
  Company Number: US-PFIZER INC-2013302304

PATIENT
  Age: 30 Year
  Sex: Male

DRUGS (4)
  1. PRISTIQ [Suspect]
     Dosage: UNK
  2. EFFEXOR XR [Suspect]
     Dosage: UNK
  3. VENLAFAXINE HCL [Suspect]
     Dosage: UNK
  4. DESVENLAFAXINE SUCCINATE MONOHYDRATE [Suspect]
     Dosage: UNK

REACTIONS (1)
  - Irritability [Unknown]
